FAERS Safety Report 24683933 (Version 2)
Quarter: 2024Q4

REPORT INFORMATION
  Report Type: Spontaneous
  Country: US (occurrence: US)
  Receive Date: 20241202
  Receipt Date: 20241211
  Transmission Date: 20250114
  Serious: No
  Sender: KARYOPHARM THERAPEUTICS
  Company Number: US-KARYOPHARM-2024KPT001831

PATIENT

DRUGS (8)
  1. XPOVIO [Suspect]
     Active Substance: SELINEXOR
     Indication: Plasma cell myeloma
     Dosage: 40 MG, WEEKLY
     Route: 048
     Dates: end: 202412
  2. PROZAC [Concomitant]
     Active Substance: FLUOXETINE HYDROCHLORIDE
  3. DAPSONE [Concomitant]
     Active Substance: DAPSONE
  4. ACYCLOVIR [Concomitant]
     Active Substance: ACYCLOVIR
  5. LEVOTHYROXINE [Concomitant]
     Active Substance: LEVOTHYROXINE
  6. CIALIS [Concomitant]
     Active Substance: TADALAFIL
  7. ONDANSETRON [Concomitant]
     Active Substance: ONDANSETRON
  8. DEXAMETHASONE [Concomitant]
     Active Substance: DEXAMETHASONE

REACTIONS (2)
  - Nasopharyngitis [Recovering/Resolving]
  - Decreased appetite [Unknown]
